FAERS Safety Report 19451016 (Version 7)
Quarter: 2022Q1

REPORT INFORMATION
  Report Type: Report from Study
  Country: US (occurrence: US)
  Receive Date: 20210622
  Receipt Date: 20220315
  Transmission Date: 20220423
  Serious: Yes (Death, Hospitalization, Other)
  Sender: FDA-Public Use
  Company Number: US-CELGENE-USA-20210602243

PATIENT
  Age: 67 Year
  Sex: Male
  Weight: 82.3 kg

DRUGS (1)
  1. VIDAZA [Suspect]
     Active Substance: AZACITIDINE
     Indication: Myelodysplastic syndrome
     Dosage: 166 MILLIGRAM
     Route: 041
     Dates: start: 20191104, end: 20200330

REACTIONS (9)
  - Pneumonia [Fatal]
  - Acute respiratory failure [Fatal]
  - Acute myeloid leukaemia [Unknown]
  - Myelodysplastic syndrome [Fatal]
  - Small intestinal haemorrhage [Fatal]
  - Melaena [Recovered/Resolved]
  - Anaemia [Recovered/Resolved]
  - Anaemia [Recovered/Resolved]
  - Thrombocytopenia [Recovered/Resolved]

NARRATIVE: CASE EVENT DATE: 20200116
